FAERS Safety Report 24858577 (Version 1)
Quarter: 2025Q1

REPORT INFORMATION
  Report Type: Report from Study
  Country: KR (occurrence: KR)
  Receive Date: 20250117
  Receipt Date: 20250117
  Transmission Date: 20250408
  Serious: Yes (Death, Hospitalization, Other)
  Sender: ABBVIE
  Company Number: KR-ABBVIE-6090993

PATIENT
  Age: 81 Year
  Sex: Male
  Weight: 70 kg

DRUGS (60)
  1. VENCLEXTA [Suspect]
     Active Substance: VENETOCLAX
     Indication: Acute myeloid leukaemia
     Route: 048
     Dates: start: 20240705, end: 20241230
  2. VENCLEXTA [Suspect]
     Active Substance: VENETOCLAX
     Indication: Acute myeloid leukaemia
     Route: 048
     Dates: start: 20240702, end: 20240702
  3. VENCLEXTA [Suspect]
     Active Substance: VENETOCLAX
     Indication: Acute myeloid leukaemia
     Route: 048
     Dates: start: 20240703, end: 20240703
  4. VENCLEXTA [Suspect]
     Active Substance: VENETOCLAX
     Indication: Acute myeloid leukaemia
     Route: 048
     Dates: start: 20240704, end: 20240704
  5. NALOXONE HYDROCHLORIDE\OXYCODONE HYDROCHLORIDE [Concomitant]
     Active Substance: NALOXONE HYDROCHLORIDE\OXYCODONE HYDROCHLORIDE
     Indication: Back pain
     Dosage: PR TAB 5/2.5MG
     Route: 048
     Dates: start: 20240701
  6. TAZOPERAN [Concomitant]
     Indication: Pyrexia
     Dosage: 4.5G
     Route: 042
     Dates: start: 20250113, end: 20250114
  7. CALCIUM POLYCARBOPHIL [Concomitant]
     Active Substance: CALCIUM POLYCARBOPHIL
     Indication: Constipation
     Route: 048
     Dates: start: 20241208, end: 20241214
  8. MEROPENEM [Concomitant]
     Active Substance: MEROPENEM
     Indication: Pyrexia
     Route: 042
     Dates: start: 20240718, end: 20240731
  9. MIRABEGRON [Concomitant]
     Active Substance: MIRABEGRON
     Indication: Pollakiuria
     Dosage: PR TAB 50MG
     Route: 048
     Dates: start: 20240712, end: 20240908
  10. ALLPAIN [Concomitant]
     Indication: Arthralgia
     Route: 042
     Dates: start: 20241223, end: 20250112
  11. Siwonal sr [Concomitant]
     Indication: Pollakiuria
     Route: 048
     Dates: start: 20240909, end: 20250112
  12. FOTAGEL [Concomitant]
     Indication: Diarrhoea
     Route: 048
     Dates: start: 20241215, end: 20241225
  13. DIFLUCAN [Concomitant]
     Active Substance: FLUCONAZOLE
     Indication: Infection prophylaxis
     Dosage: 50MG
     Route: 048
     Dates: start: 20240819, end: 20241204
  14. ACETYLCYSTEINE [Concomitant]
     Active Substance: ACETYLCYSTEINE
     Indication: Cough
     Dosage: INJ 100MG/ML 6ML
     Route: 042
     Dates: start: 20241229, end: 20250114
  15. PRUCALOPRIDE SUCCINATE [Concomitant]
     Active Substance: PRUCALOPRIDE SUCCINATE
     Indication: Constipation
     Route: 048
     Dates: start: 20250109, end: 20250113
  16. PRUCALOPRIDE SUCCINATE [Concomitant]
     Active Substance: PRUCALOPRIDE SUCCINATE
     Indication: Constipation
     Route: 048
     Dates: start: 20240704, end: 20240724
  17. LYRICA [Concomitant]
     Active Substance: PREGABALIN
     Indication: Back pain
     Route: 048
     Dates: start: 20240703, end: 20241024
  18. HARNAL [Concomitant]
     Active Substance: TAMSULOSIN HYDROCHLORIDE
     Indication: Pollakiuria
     Route: 048
     Dates: start: 20241203, end: 20250112
  19. LEVOFLOXACIN [Concomitant]
     Active Substance: LEVOFLOXACIN
     Indication: Pyrexia
     Dosage: INJ 500MG/100ML
     Route: 042
     Dates: start: 20240718, end: 20240731
  20. Godex [Concomitant]
     Indication: Blood bilirubin increased
     Route: 048
     Dates: start: 20240725, end: 20240801
  21. TYLICOL [Concomitant]
     Indication: Pyrexia
     Route: 042
     Dates: start: 20240716, end: 20240722
  22. TYLICOL [Concomitant]
     Indication: Pyrexia
     Dosage: FREQUENCY TEXT: PRN
     Route: 042
     Dates: start: 20240704, end: 20240706
  23. TYLICOL [Concomitant]
     Indication: Pyrexia
     Route: 042
     Dates: start: 20241212
  24. ALLOPURINOL [Concomitant]
     Active Substance: ALLOPURINOL
     Indication: Prophylaxis
     Route: 048
     Dates: start: 20240628, end: 20240723
  25. Coritussal f cough [Concomitant]
     Indication: Cough
     Route: 048
     Dates: start: 20240721, end: 20241217
  26. VANCOCIN CP [Concomitant]
     Indication: Pyrexia
     Dosage: FORM STRENGTH: 1 GRAMS
     Route: 042
     Dates: start: 20241212
  27. VANCOCIN CP [Concomitant]
     Indication: Pyrexia
     Dosage: FORM STRENGTH: 1 GRAMS
     Route: 042
     Dates: start: 20240718, end: 20240724
  28. VANCOCIN CP [Concomitant]
     Indication: Pyrexia
     Dosage: FORM STRENGTH: 500 MILLIGRAMS
     Route: 042
     Dates: start: 20241212, end: 20250101
  29. Dulackhan easy [Concomitant]
     Indication: Constipation
     Route: 048
     Dates: start: 20241205, end: 20241214
  30. Dulackhan easy [Concomitant]
     Indication: Constipation
     Route: 048
     Dates: start: 20250105, end: 20250110
  31. Dulackhan easy [Concomitant]
     Indication: Constipation
     Route: 048
     Dates: start: 20240704, end: 20240819
  32. AMLODIPINE CAMSYLATE [Concomitant]
     Active Substance: AMLODIPINE CAMSYLATE
     Indication: Hypertension
     Route: 048
     Dates: start: 20240628, end: 20241225
  33. NAXOZOL [Concomitant]
     Indication: Pyrexia
     Dosage: 500/20MG
     Route: 048
     Dates: start: 20241215, end: 20250107
  34. Yuhan meropen [Concomitant]
     Indication: Pyrexia
     Route: 042
     Dates: start: 20241219, end: 20250113
  35. Vacrax [Concomitant]
     Indication: Infection prophylaxis
     Dosage: 200MG
     Route: 048
     Dates: start: 20240702, end: 20250107
  36. POWERCOL COUGH [Concomitant]
     Indication: Cough
     Route: 048
     Dates: start: 20241203, end: 20250112
  37. ERDOSTEINE [Concomitant]
     Active Substance: ERDOSTEINE
     Indication: Cough
     Route: 048
     Dates: start: 20241223, end: 20250112
  38. PROPACETAMOL HYDROCHLORIDE [Concomitant]
     Active Substance: PROPACETAMOL HYDROCHLORIDE
     Indication: Pyrexia
     Route: 042
     Dates: start: 20240718, end: 20240725
  39. PROPACETAMOL HYDROCHLORIDE [Concomitant]
     Active Substance: PROPACETAMOL HYDROCHLORIDE
     Indication: Pyrexia
     Route: 042
     Dates: start: 20241214, end: 20241226
  40. METOCLOPRAMIDE HYDROCHLORIDE [Concomitant]
     Active Substance: METOCLOPRAMIDE HYDROCHLORIDE
     Indication: Nausea
     Route: 042
     Dates: start: 20240717, end: 20240727
  41. METOCLOPRAMIDE HYDROCHLORIDE [Concomitant]
     Active Substance: METOCLOPRAMIDE HYDROCHLORIDE
     Indication: Nausea
     Route: 042
     Dates: start: 20241210, end: 20250114
  42. CASFUNG [Concomitant]
     Indication: Pyrexia
     Route: 042
     Dates: start: 20240718, end: 20240731
  43. CASFUNG [Concomitant]
     Indication: Pyrexia
     Dosage: INJ 70MG?STOP DATE TEXT: ONGOING
     Route: 042
     Dates: start: 20241206
  44. ULTRACET [Concomitant]
     Active Substance: ACETAMINOPHEN\TRAMADOL HYDROCHLORIDE
     Indication: Back pain
     Route: 048
     Dates: start: 20241014, end: 20250106
  45. FEDULOW [Concomitant]
     Indication: Prophylaxis
     Dosage: SUSP 20ML
     Route: 048
     Dates: start: 20240822, end: 20241031
  46. LIPITOR [Concomitant]
     Active Substance: ATORVASTATIN CALCIUM
     Indication: Dyslipidaemia
     Dosage: 10MG
     Route: 048
     Dates: start: 20240701, end: 20241218
  47. MAGNESIUM HYDROXIDE [Concomitant]
     Active Substance: MAGNESIUM HYDROXIDE
     Indication: Constipation
     Route: 048
     Dates: start: 20240704, end: 20240819
  48. MAGNESIUM HYDROXIDE [Concomitant]
     Active Substance: MAGNESIUM HYDROXIDE
     Indication: Constipation
     Route: 048
     Dates: start: 20240801, end: 20240818
  49. NOXAFIL [Concomitant]
     Active Substance: POSACONAZOLE
     Indication: Infection prophylaxis
     Route: 048
     Dates: start: 20240702, end: 20240711
  50. VIZADAKIN [Concomitant]
     Indication: Acute myeloid leukaemia
     Route: 042
     Dates: start: 20241204, end: 20241210
  51. VIZADAKIN [Concomitant]
     Indication: Acute myeloid leukaemia
     Route: 042
     Dates: start: 20240702, end: 20240708
  52. VIZADAKIN [Concomitant]
     Indication: Acute myeloid leukaemia
     Route: 042
     Dates: start: 20240819, end: 20240825
  53. VIZADAKIN [Concomitant]
     Indication: Acute myeloid leukaemia
     Route: 042
     Dates: start: 20241014, end: 20241020
  54. DIOVAN [Concomitant]
     Active Substance: VALSARTAN
     Indication: Hypertension
     Route: 048
     Dates: start: 20240628, end: 20250112
  55. PROSCAR [Concomitant]
     Active Substance: FINASTERIDE
     Indication: Pollakiuria
     Route: 048
     Dates: start: 20240909, end: 20250112
  56. LENOGRASTIM [Concomitant]
     Active Substance: LENOGRASTIM
     Indication: Neutrophil count decreased
     Route: 042
     Dates: start: 20240719, end: 20240730
  57. LENOGRASTIM [Concomitant]
     Active Substance: LENOGRASTIM
     Indication: Neutrophil count decreased
     Route: 042
     Dates: start: 20241216, end: 20250111
  58. MAXIPIME [Concomitant]
     Active Substance: CEFEPIME HYDROCHLORIDE
     Indication: Pyrexia
     Route: 042
     Dates: start: 20240704, end: 20240718
  59. MAXIPIME [Concomitant]
     Active Substance: CEFEPIME HYDROCHLORIDE
     Indication: Pyrexia
     Route: 042
     Dates: start: 20240716, end: 20240718
  60. MAXIPIME [Concomitant]
     Active Substance: CEFEPIME HYDROCHLORIDE
     Indication: Pyrexia
     Route: 042
     Dates: start: 20241205, end: 20241219

REACTIONS (2)
  - Acute myeloid leukaemia [Fatal]
  - Atrial fibrillation [Not Recovered/Not Resolved]

NARRATIVE: CASE EVENT DATE: 20241202
